FAERS Safety Report 4353824-3 (Version None)
Quarter: 2004Q2

REPORT INFORMATION
  Report Type: 
  Country: None (occurrence: None)
  Receive Date: 20040430
  Receipt Date: 20040419
  Transmission Date: 20050107
  Serious: Yes (Hospitalization)
  Sender: FDA-Public Use
  Company Number: 2004209604PL

PATIENT
  Age: 44 Year
  Sex: Male
  Weight: 80 kg

DRUGS (4)
  1. XALATAN [Suspect]
     Indication: GLAUCOMA
     Dosage: QD, OPHTHALMIC
     Route: 047
     Dates: start: 20040409, end: 20040414
  2. MAXITROL [Concomitant]
  3. BETOPTIC [Concomitant]
  4. NEO-SYNEPHRINE (PHENYLEPHRINE HYDROCHLORIDE) [Concomitant]

REACTIONS (1)
  - CYTOMEGALOVIRUS CHORIORETINITIS [None]
